FAERS Safety Report 9389529 (Version 1)
Quarter: 2013Q3

REPORT INFORMATION
  Report Type: Spontaneous
  Country: US (occurrence: US)
  Receive Date: 20130708
  Receipt Date: 20130708
  Transmission Date: 20140515
  Serious: No
  Sender: FDA-Public Use
  Company Number: US-AMGEN-USASP2013044767

PATIENT
  Sex: 0

DRUGS (2)
  1. ENBREL [Suspect]
     Dosage: 50 MG, EVERY 10 DAYS
     Route: 063
     Dates: start: 20050513
  2. ENBREL [Suspect]
     Dosage: 50 MG, EVERY 10 DAYS
     Route: 063
     Dates: start: 20050513

REACTIONS (1)
  - Exposure during breast feeding [Recovered/Resolved]
